FAERS Safety Report 6645649-0 (Version None)
Quarter: 2010Q1

REPORT INFORMATION
  Report Type: 
  Country: None (occurrence: None)
  Receive Date: 20100323
  Receipt Date: 20100309
  Transmission Date: 20100710
  Serious: Yes (Hospitalization)
  Sender: FDA-Public Use
  Company Number: GB-RANBAXY-2010RR-32510

PATIENT
  Age: 45 Year
  Sex: Female

DRUGS (8)
  1. CEPHALEXIN [Suspect]
     Indication: LOWER RESPIRATORY TRACT INFECTION
     Dosage: UNK
     Route: 048
     Dates: start: 20090915, end: 20091015
  2. ACYCLOVIR SODIUM [Concomitant]
     Indication: ORAL HERPES
     Dosage: 1 DF, UNK
     Route: 061
     Dates: start: 20091016, end: 20091020
  3. AUGMENTIN [Concomitant]
     Dosage: 500 MG, TID
  4. CITALOPRAM HYDROBROMIDE [Concomitant]
     Dosage: 60 MG, QD
  5. CLENIL MODULITE [Concomitant]
     Indication: ASTHMA
     Dosage: 250 UG, UNK
     Route: 055
  6. DIAZEPAM [Concomitant]
     Indication: MUSCLE SPASMS
     Dosage: 2 MG, BID
     Route: 048
  7. LACTULOSE [Concomitant]
     Indication: CONSTIPATION
     Dosage: 10 ML, BID
     Route: 048
  8. LYRICA [Concomitant]
     Dosage: 300 MG, BID

REACTIONS (1)
  - LIVER FUNCTION TEST ABNORMAL [None]
